FAERS Safety Report 4597869-7 (Version None)
Quarter: 2005Q1

REPORT INFORMATION
  Report Type: 
  Country: None (occurrence: None)
  Receive Date: 20050301
  Receipt Date: 20050216
  Transmission Date: 20050727
  Serious: Yes (Life-Threatening, Hospitalization, Other)
  Sender: FDA-Public Use
  Company Number: USA-2005-0018907

PATIENT
  Age: 54 Year
  Sex: Female

DRUGS (6)
  1. OXYCONTIN [Suspect]
     Indication: PAIN
     Dosage: 80 + 120 MG, AM
  2. DEPAKOTE [Concomitant]
  3. CELEBREX [Concomitant]
  4. COMBIVENT [Concomitant]
  5. LORAZEPAM [Concomitant]
  6. PREDNISONE [Concomitant]

REACTIONS (2)
  - BRAIN OEDEMA [None]
  - CONVULSION [None]
